FAERS Safety Report 4334437-6 (Version None)
Quarter: 2004Q2

REPORT INFORMATION
  Report Type: 
  Country: None (occurrence: None)
  Receive Date: 20040405
  Receipt Date: 20040329
  Transmission Date: 20050107
  Serious: Yes (Other)
  Sender: FDA-Public Use
  Company Number: HQ3831916AUG2002

PATIENT
  Age: 24 Year
  Sex: Female
  Weight: 57.66 kg

DRUGS (4)
  1. DIMETAPP [Suspect]
     Indication: HYPERSENSITIVITY
     Dosage: ORAL
     Route: 048
     Dates: start: 19970101, end: 19990101
  2. DIMETAPP [Suspect]
     Indication: NASOPHARYNGITIS
     Dosage: ORAL
     Route: 048
     Dates: start: 19970101, end: 19990101
  3. BROMANATE [Suspect]
     Indication: HYPERSENSITIVITY
     Dosage: ORAL
     Route: 048
     Dates: start: 19970101, end: 19990101
  4. BROMANATE [Suspect]
     Indication: NASOPHARYNGITIS
     Dosage: ORAL
     Route: 048
     Dates: start: 19970101, end: 19990101

REACTIONS (3)
  - ARTERIOVENOUS MALFORMATION [None]
  - BRAIN NEOPLASM [None]
  - HAEMORRHAGIC STROKE [None]
